FAERS Safety Report 4746758-3 (Version None)
Quarter: 2005Q3

REPORT INFORMATION
  Report Type: 
  Country: None (occurrence: None)
  Receive Date: 20050816
  Receipt Date: 20050816
  Transmission Date: 20060218
  Serious: Yes (Hospitalization)
  Sender: FDA-Public Use
  Company Number: None

PATIENT
  Age: 25 Year
  Sex: Female

DRUGS (1)
  1. AVELOX [Suspect]
     Indication: SINUSITIS
     Dosage: 400 MG X ONE
     Dates: start: 20050519

REACTIONS (4)
  - ABDOMINAL PAIN [None]
  - CONVULSION [None]
  - RASH [None]
  - VOMITING [None]
